FAERS Safety Report 11052082 (Version 2)
Quarter: 2015Q2

REPORT INFORMATION
  Report Type: Spontaneous
  Country: IT (occurrence: IT)
  Receive Date: 20150421
  Receipt Date: 20150623
  Transmission Date: 20150821
  Serious: Yes (Hospitalization)
  Sender: FDA-Public Use
  Company Number: IT-BAYER-2015-130179

PATIENT
  Age: 65 Year
  Sex: Female

DRUGS (3)
  1. CIPROXIN 500 MG FILM-COATED TABLETS [Suspect]
     Active Substance: CIPROFLOXACIN
     Dosage: 500 MG, QD
     Dates: start: 20150327, end: 20150404
  2. ZYLORIC [Concomitant]
     Active Substance: ALLOPURINOL
  3. MICARDIS [Concomitant]
     Active Substance: TELMISARTAN
     Route: 048

REACTIONS (2)
  - Infected bites [Recovering/Resolving]
  - Drug ineffective [None]

NARRATIVE: CASE EVENT DATE: 20150404
